FAERS Safety Report 20640686 (Version 1)
Quarter: 2022Q1

REPORT INFORMATION
  Report Type: Spontaneous
  Country: US (occurrence: US)
  Receive Date: 20220327
  Receipt Date: 20220327
  Transmission Date: 20220423
  Serious: No
  Sender: FDA-Public Use
  Company Number: US-SA-SAC20220321001560

PATIENT

DRUGS (7)
  1. DUPIXENT [Suspect]
     Active Substance: DUPILUMAB
     Indication: Dermatitis atopic
     Route: 058
     Dates: start: 20201109
  2. VITAMINS [Concomitant]
     Active Substance: VITAMINS
  3. ESCITALOPRAM [Concomitant]
     Active Substance: ESCITALOPRAM OXALATE
  4. FOSAMAX [Concomitant]
     Active Substance: ALENDRONATE SODIUM
  5. CLOBETASOL [Concomitant]
     Active Substance: CLOBETASOL
  6. FISH OIL [Concomitant]
     Active Substance: FISH OIL
  7. DELTA D3 [Concomitant]

REACTIONS (2)
  - Skin lesion [Unknown]
  - Condition aggravated [Unknown]
